FAERS Safety Report 13156097 (Version 1)
Quarter: 2017Q1

REPORT INFORMATION
  Report Type: Spontaneous
  Country: RU (occurrence: RU)
  Receive Date: 20170126
  Receipt Date: 20170126
  Transmission Date: 20170428
  Serious: Yes (Other)
  Sender: FDA-Public Use
  Company Number: RU-TEVA-731114ISR

PATIENT
  Age: 19 Year
  Sex: Female

DRUGS (1)
  1. MODELL TREND [Suspect]
     Active Substance: DROSPIRENONE\ETHINYL ESTRADIOL
     Dates: start: 20170101

REACTIONS (2)
  - Haemorrhage [Not Recovered/Not Resolved]
  - Nausea [Not Recovered/Not Resolved]
